FAERS Safety Report 13581879 (Version 2)
Quarter: 2017Q2

REPORT INFORMATION
  Report Type: Report from Study
  Country: US (occurrence: US)
  Receive Date: 20170525
  Receipt Date: 20170630
  Transmission Date: 20170830
  Serious: Yes (Other)
  Sender: FDA-Public Use
  Company Number: US-AMGEN-USASL2017077700

PATIENT
  Age: 61 Year
  Sex: Female

DRUGS (1)
  1. REPATHA [Suspect]
     Active Substance: EVOLOCUMAB
     Indication: HYPERCHOLESTEROLAEMIA
     Dosage: 420 MG, QMO
     Route: 058

REACTIONS (5)
  - Coeliac disease [Unknown]
  - Cognitive disorder [Unknown]
  - Drug dose omission [Unknown]
  - Viral upper respiratory tract infection [Unknown]
  - Protein deficiency [Unknown]

NARRATIVE: CASE EVENT DATE: 201701
